FAERS Safety Report 10216124 (Version 1)
Quarter: 2014Q2

REPORT INFORMATION
  Report Type: Spontaneous
  Country: US (occurrence: None)
  Receive Date: 20140603
  Receipt Date: 20140603
  Transmission Date: 20141212
  Serious: Yes (Hospitalization)
  Sender: FDA-Public Use
  Company Number: None

PATIENT
  Age: 59 Year
  Sex: Female
  Weight: 56.7 kg

DRUGS (1)
  1. WELCHOL 675 MG [Suspect]
     Indication: BLOOD CHOLESTEROL INCREASED
     Dosage: THREE PILLS, TWICE DAILY, TAKEN BY MOUTH
     Route: 048
     Dates: start: 20131112, end: 20140521

REACTIONS (8)
  - Nasal mucosal disorder [None]
  - Pneumonia [None]
  - Pulmonary mass [None]
  - Muscle spasms [None]
  - Nasopharyngitis [None]
  - Lung disorder [None]
  - Influenza like illness [None]
  - Sinus congestion [None]
